FAERS Safety Report 10306099 (Version 1)
Quarter: 2014Q3

REPORT INFORMATION
  Report Type: Spontaneous
  Country: US (occurrence: None)
  Receive Date: 20140711
  Receipt Date: 20140711
  Transmission Date: 20150326
  Serious: No
  Sender: FDA-Public Use
  Company Number: 153363

PATIENT
  Age: 1 Day
  Sex: Male

DRUGS (1)
  1. CAFCIT [Suspect]
     Active Substance: CAFFEINE CITRATE
     Indication: SLEEP APNOEA SYNDROME
     Route: 042
     Dates: start: 20140626

REACTIONS (3)
  - Medication error [None]
  - Product packaging issue [None]
  - Product label confusion [None]

NARRATIVE: CASE EVENT DATE: 20140626
